FAERS Safety Report 16150557 (Version 1)
Quarter: 2019Q2

REPORT INFORMATION
  Report Type: Spontaneous
  Country: US (occurrence: US)
  Receive Date: 20190402
  Receipt Date: 20190402
  Transmission Date: 20190711
  Serious: Yes (Death)
  Sender: FDA-Public Use
  Company Number: None

PATIENT
  Age: 58 Year
  Sex: Male

DRUGS (3)
  1. MAGNESIUM TABLET 250MG [Concomitant]
     Dates: start: 20190312
  2. VITAMIN D3 CAPSULE 2000 UNITS [Concomitant]
     Dates: start: 20190312
  3. COSENTYX [Suspect]
     Active Substance: SECUKINUMAB
     Indication: PSORIASIS
     Dosage: ?          OTHER FREQUENCY:EVERY WEEK;?
     Route: 058

REACTIONS (1)
  - Influenza [None]

NARRATIVE: CASE EVENT DATE: 20190329
